FAERS Safety Report 5195373-9 (Version None)
Quarter: 2006Q4

REPORT INFORMATION
  Report Type: 
  Country: None (occurrence: None)
  Receive Date: 20061229
  Receipt Date: 20061220
  Transmission Date: 20070319
  Serious: Yes (Other)
  Sender: FDA-Public Use
  Company Number: US-PFIZER INC-2006155350

PATIENT
  Sex: Female
  Weight: 27.7 kg

DRUGS (6)
  1. ZYVOX [Suspect]
     Indication: ENTEROCOCCAL INFECTION
     Route: 042
  2. BACTRIM [Concomitant]
  3. VORICONAZOLE [Concomitant]
  4. FLAGYL [Concomitant]
  5. AMIKACIN [Concomitant]
  6. CIPROFLOXACIN [Concomitant]

REACTIONS (1)
  - DRUG RESISTANCE [None]
